FAERS Safety Report 9179426 (Version 1)
Quarter: 2013Q1

REPORT INFORMATION
  Report Type: Spontaneous
  Country: IT (occurrence: IT)
  Receive Date: 20130321
  Receipt Date: 20130321
  Transmission Date: 20140127
  Serious: Yes (Hospitalization, Other)
  Sender: FDA-Public Use
  Company Number: IT-TEVA-382331ISR

PATIENT
  Age: 79 Year
  Sex: Male
  Weight: 54 kg

DRUGS (3)
  1. FLUOROURACILE [Suspect]
     Indication: COLON CANCER
     Dosage: 2400 MILLIGRAM DAILY;
     Route: 042
     Dates: start: 20121014, end: 20121114
  2. IRINOTECAN [Suspect]
     Indication: COLON CANCER
     Dosage: 200 MILLIGRAM DAILY;
     Route: 042
     Dates: start: 20121014, end: 20121114
  3. ERBITUX [Concomitant]
     Indication: COLON CANCER
     Dosage: 400 MILLIGRAM DAILY;
     Route: 042
     Dates: start: 20121014, end: 20130124

REACTIONS (4)
  - Neutropenia [Recovered/Resolved]
  - Pancytopenia [Recovered/Resolved]
  - Hepatic failure [Recovered/Resolved]
  - Hyperbilirubinaemia [Recovered/Resolved]
